FAERS Safety Report 4603176-6 (Version None)
Quarter: 2005Q1

REPORT INFORMATION
  Report Type: 
  Country: None (occurrence: None)
  Receive Date: 20050307
  Receipt Date: 20050218
  Transmission Date: 20050727
  Serious: Yes (Hospitalization)
  Sender: FDA-Public Use
  Company Number: 2004IM000560

PATIENT
  Age: 57 Year
  Sex: Female
  Weight: 73 kg

DRUGS (4)
  1. INTERFERON GAMMA-1B [Suspect]
     Indication: OVARIAN CANCER
     Dosage: 100 UG, TIW, SUBCUTANEOUS
     Route: 058
     Dates: start: 20031023, end: 20040321
  2. CARBOPLATIN [Suspect]
     Indication: OVARIAN CANCER
     Dosage: 800 MG, Q3W, INTRAVENOUS
     Route: 042
     Dates: start: 20031023, end: 20040303
  3. PACLITAXEL [Suspect]
     Indication: OVARIAN CANCER
     Dosage: 310 MG, Q3W, INTRAVENOUS
     Route: 042
     Dates: start: 20031023, end: 20040303
  4. NEUPOGEN [Concomitant]

REACTIONS (1)
  - PANCYTOPENIA [None]
